FAERS Safety Report 7511127-X (Version None)
Quarter: 2011Q2

REPORT INFORMATION
  Report Type: 
  Country: None (occurrence: None)
  Receive Date: 20110531
  Receipt Date: 20110517
  Transmission Date: 20111010
  Serious: No
  Sender: FDA-Public Use
  Company Number: US-JNJFOC-20110508332

PATIENT
  Sex: Male

DRUGS (5)
  1. DURAGESIC-100 [Suspect]
     Indication: PAIN
     Dosage: NDC 50458-091-05
     Route: 062
  2. GABAPENTIN [Concomitant]
     Indication: PAIN
     Route: 048
  3. HYDROCODONE BITARTRATE AND ACETAMINOPHEN [Concomitant]
     Indication: PAIN
     Dosage: 10-325
     Route: 048
  4. ZALEPLON [Concomitant]
     Indication: SLEEP DISORDER
     Route: 048
  5. PAROXETINE HCL [Concomitant]
     Indication: ANXIETY
     Route: 065

REACTIONS (4)
  - DERMATITIS CONTACT [None]
  - HEADACHE [None]
  - WRONG TECHNIQUE IN DRUG USAGE PROCESS [None]
  - PRODUCT ADHESION ISSUE [None]
